FAERS Safety Report 4524995-0 (Version None)
Quarter: 2004Q4

REPORT INFORMATION
  Report Type: 
  Country: None (occurrence: None)
  Receive Date: 20041117
  Receipt Date: 20030711
  Transmission Date: 20050328
  Serious: Yes (Other)
  Sender: FDA-Public Use
  Company Number: C2003-1735.01

PATIENT
  Age: 43 Year
  Sex: Female

DRUGS (5)
  1. CLOZAPINE [Suspect]
     Indication: SCHIZOPHRENIA
     Dosage: 400MG Q HS, ORAL
     Route: 048
     Dates: start: 20021201
  2. ASPIRIN [Concomitant]
  3. DOCUSATE SODIUM [Concomitant]
  4. GLYCOPYRROLATE [Concomitant]
  5. MULTI-VITAMIN [Concomitant]

REACTIONS (4)
  - ANTIPSYCHOTIC DRUG LEVEL BELOW THERAPEUTIC [None]
  - DROOLING [None]
  - FATIGUE [None]
  - URINARY INCONTINENCE [None]
